FAERS Safety Report 15428818 (Version 2)
Quarter: 2018Q4

REPORT INFORMATION
  Report Type: Report from Study
  Country: HN (occurrence: HN)
  Receive Date: 20180926
  Receipt Date: 20181005
  Transmission Date: 20190204
  Serious: Yes (Death, Other)
  Sender: FDA-Public Use
  Company Number: PHHY2018HN099871

PATIENT
  Age: 66 Year
  Sex: Female

DRUGS (2)
  1. VYMADA [Suspect]
     Active Substance: SACUBITRIL\VALSARTAN
     Indication: CARDIAC FAILURE
     Dosage: 100 MG (49 MG SACUBITRIL AND 51 MG VALSARTAN), UNK
     Route: 065
  2. VYMADA [Suspect]
     Active Substance: SACUBITRIL\VALSARTAN
     Dosage: 2 DF, Q12H
     Route: 048
     Dates: start: 201805

REACTIONS (10)
  - Terminal state [Unknown]
  - Cardiac disorder [Unknown]
  - Abdominal pain lower [Unknown]
  - Decreased appetite [Unknown]
  - Uterine cancer [Fatal]
  - Metastasis [Unknown]
  - Fatigue [Unknown]
  - Renal disorder [Unknown]
  - Blood pressure abnormal [Unknown]
  - Pain [Unknown]

NARRATIVE: CASE EVENT DATE: 201804
